FAERS Safety Report 6200553-7 (Version None)
Quarter: 2009Q2

REPORT INFORMATION
  Report Type: 
  Country: None (occurrence: None)
  Receive Date: 20090522
  Receipt Date: 20090518
  Transmission Date: 20091009
  Serious: Yes (Death, Hospitalization, Other)
  Sender: FDA-Public Use
  Company Number: DE-AMGEN-UK341115

PATIENT
  Sex: Male
  Weight: 70 kg

DRUGS (15)
  1. VECTIBIX [Suspect]
     Indication: COLORECTAL CANCER
     Route: 042
     Dates: start: 20090310, end: 20090310
  2. PARACODIN BITARTRATE TAB [Concomitant]
     Route: 065
     Dates: start: 20081201
  3. OMEPRAZOLE [Concomitant]
     Route: 065
  4. SIMVASTATIN [Concomitant]
     Route: 065
  5. PREDNISOLONE [Concomitant]
     Route: 065
  6. AMLODIPINE [Concomitant]
     Route: 065
  7. LACTULOSE [Concomitant]
     Route: 065
  8. TAMSULOSIN HCL [Concomitant]
     Route: 065
  9. NOVALGIN [Concomitant]
     Route: 065
  10. LISINOPRIL [Concomitant]
     Route: 065
  11. SYMBICORT [Concomitant]
     Route: 065
  12. OXAZEPAM [Concomitant]
     Route: 065
  13. DECORTIN [Concomitant]
     Route: 065
  14. VERGENTAN [Concomitant]
     Route: 065
  15. SEVREDOL [Concomitant]
     Route: 065

REACTIONS (4)
  - DEATH [None]
  - DYSPNOEA [None]
  - GENERAL PHYSICAL HEALTH DETERIORATION [None]
  - MALIGNANT NEOPLASM PROGRESSION [None]
